FAERS Safety Report 17052150 (Version 6)
Quarter: 2021Q4

REPORT INFORMATION
  Report Type: Spontaneous
  Country: CA (occurrence: CA)
  Receive Date: 20191120
  Receipt Date: 20211201
  Transmission Date: 20220304
  Serious: Yes (Hospitalization, Other)
  Sender: FDA-Public Use
  Company Number: CA-DRREDDYS-USA/CAN/19/0116088

PATIENT
  Age: 52 Year
  Sex: Female

DRUGS (13)
  1. PROGESTERONE [Suspect]
     Active Substance: PROGESTERONE
     Indication: Menopause
     Route: 065
  2. BUDESONIDE [Suspect]
     Active Substance: BUDESONIDE
     Indication: Product used for unknown indication
     Route: 045
  3. BUDESONIDE [Suspect]
     Active Substance: BUDESONIDE
     Route: 045
  4. PRASTERONE [Suspect]
     Active Substance: PRASTERONE
     Indication: Product used for unknown indication
     Route: 067
  5. ESTRADIOL [Suspect]
     Active Substance: ESTRADIOL
     Indication: Product used for unknown indication
     Route: 065
  6. LORATADINE [Suspect]
     Active Substance: LORATADINE
     Indication: Product used for unknown indication
     Route: 048
  7. PRASTERONE [Suspect]
     Active Substance: PRASTERONE
     Indication: Product used for unknown indication
     Route: 067
  8. UNSPECIFIED INGREDIENT [Suspect]
     Active Substance: UNSPECIFIED INGREDIENT
     Indication: Product used for unknown indication
  9. CRINONE [Suspect]
     Active Substance: PROGESTERONE
     Indication: Menopause
     Route: 065
  10. ESTRADIOL BENZOATE [Suspect]
     Active Substance: ESTRADIOL BENZOATE
     Indication: Product used for unknown indication
     Route: 065
  11. CLARITIN [Concomitant]
     Active Substance: LORATADINE
     Indication: Menopause
  12. BUDESONIDE [Concomitant]
     Active Substance: BUDESONIDE
     Indication: Product used for unknown indication
  13. GLICLAZIDE [Concomitant]
     Active Substance: GLICLAZIDE
     Indication: Product used for unknown indication
     Route: 048

REACTIONS (11)
  - Cellulitis [Unknown]
  - Head discomfort [Unknown]
  - Photosensitivity reaction [Unknown]
  - Tinnitus [Unknown]
  - Butterfly rash [Unknown]
  - Periorbital oedema [Unknown]
  - Rash [Unknown]
  - Swelling face [Unknown]
  - Feeling hot [Unknown]
  - Headache [Unknown]
  - Product use in unapproved indication [Unknown]
